FAERS Safety Report 18778053 (Version 1)
Quarter: 2021Q1

REPORT INFORMATION
  Report Type: Report from Study
  Country: US (occurrence: US)
  Receive Date: 20210122
  Receipt Date: 20210122
  Transmission Date: 20210419
  Serious: Yes (Death, Life-Threatening, Hospitalization)
  Sender: FDA-Public Use
  Company Number: US-BAXTER-2021BAX001328

PATIENT
  Sex: Male
  Weight: 101.8 kg

DRUGS (22)
  1. DOXIL [Suspect]
     Active Substance: DOXORUBICIN HYDROCHLORIDE
     Dosage: LAST DOSE PRIOR TO SAE
     Route: 065
     Dates: start: 20201102, end: 20201102
  2. CYTARABINE. [Suspect]
     Active Substance: CYTARABINE
     Dosage: LAST DOSE PRIOR TO SAE
     Route: 065
     Dates: start: 20201127, end: 20201127
  3. VINCRISTINE SULFATE. [Suspect]
     Active Substance: VINCRISTINE SULFATE
     Indication: B PRECURSOR TYPE ACUTE LEUKAEMIA
     Dosage: TOTAL DOSE ADMINISTERED THIS COURSE: 32 MG
     Route: 065
     Dates: end: 20201102
  4. DAUNORUBICIN [Suspect]
     Active Substance: DAUNORUBICIN
     Dosage: LAST DOSE PRIOR TO SAE
     Route: 065
     Dates: start: 20200409, end: 20200409
  5. ONCASPAR [Suspect]
     Active Substance: PEGASPARGASE
     Dosage: LAST DOSE PRIOR TO SAE
     Route: 065
     Dates: start: 20201022, end: 20201022
  6. CYTARABINE. [Suspect]
     Active Substance: CYTARABINE
     Indication: B PRECURSOR TYPE ACUTE LEUKAEMIA
     Dosage: TOTAL DOSE ADMINISTERED THIS COURSE: 4021 MG
     Route: 065
     Dates: end: 20201127
  7. METHOTREXATE SODIUM. [Suspect]
     Active Substance: METHOTREXATE SODIUM
     Indication: B PRECURSOR TYPE ACUTE LEUKAEMIA
     Dosage: TOTAL DOSE ADMINISTERED THIS COURSE: 2044 MG
     Route: 065
     Dates: end: 20201123
  8. VINCRISTINE SULFATE. [Suspect]
     Active Substance: VINCRISTINE SULFATE
     Dosage: LAST DOSE PRIOR TO SAE
     Route: 065
     Dates: start: 20201102, end: 20201102
  9. ONCASPAR [Suspect]
     Active Substance: PEGASPARGASE
     Indication: B PRECURSOR TYPE ACUTE LEUKAEMIA
     Dosage: TOTAL DOSE ADMINISTERED THIS COURSE: 50400 UNIT
     Route: 065
     Dates: end: 20201022
  10. DOXIL [Suspect]
     Active Substance: DOXORUBICIN HYDROCHLORIDE
     Indication: B PRECURSOR TYPE ACUTE LEUKAEMIA
     Dosage: TOTAL DOSE ADMINISTERED THIS COURSE: 162 MG
     Route: 065
     Dates: start: 20201019, end: 20201102
  11. INOTUZUMAB OZOGAMICIN [Suspect]
     Active Substance: INOTUZUMAB OZOGAMICIN
     Dosage: LAST DOSE PRIOR TO SAE
     Route: 065
     Dates: start: 20200604, end: 20200604
  12. THIOGUANINE [Suspect]
     Active Substance: THIOGUANINE
     Dosage: LAST DOSE PRIOR TO SAE
     Route: 065
     Dates: start: 20201129, end: 20201129
  13. MERCAPTOPURINE. [Suspect]
     Active Substance: MERCAPTOPURINE
     Dosage: LAST DOSE PRIOR TO SAE
     Route: 065
     Dates: start: 20200802, end: 20200802
  14. THIOGUANINE [Suspect]
     Active Substance: THIOGUANINE
     Indication: B PRECURSOR TYPE ACUTE LEUKAEMIA
     Dosage: TOTAL DOSE ADMINISTERED THIS COURSE: 1840 MG
     Route: 065
     Dates: end: 20201129
  15. DEXAMETHASONE. [Suspect]
     Active Substance: DEXAMETHASONE
     Dosage: LAST DOSE PRIOR TO SAE
     Route: 065
     Dates: start: 20201109, end: 20201109
  16. CYCLOPHOSPHAMIDE FOR INJECTION, USP [Suspect]
     Active Substance: CYCLOPHOSPHAMIDE
     Indication: B PRECURSOR TYPE ACUTE LEUKAEMIA
     Dosage: TOTAL DOSE ADMINISTERED THIS COURSE: 6720 MG
     Route: 065
     Dates: start: 20200622, end: 20201116
  17. METHOTREXATE SODIUM. [Suspect]
     Active Substance: METHOTREXATE SODIUM
     Dosage: LAST DOSE PRIOR TO SAE
     Route: 065
     Dates: start: 20201123, end: 20201123
  18. DAUNORUBICIN [Suspect]
     Active Substance: DAUNORUBICIN
     Indication: B PRECURSOR TYPE ACUTE LEUKAEMIA
     Dosage: TOTAL DOSE ADMINISTERED THIS COURSE 214 MG
     Route: 065
     Dates: end: 20200409
  19. CYCLOPHOSPHAMIDE FOR INJECTION, USP [Suspect]
     Active Substance: CYCLOPHOSPHAMIDE
     Dosage: LAST DOSE PRIOR TO SAE
     Route: 065
     Dates: start: 20201116, end: 20201116
  20. DEXAMETHASONE. [Suspect]
     Active Substance: DEXAMETHASONE
     Indication: B PRECURSOR TYPE ACUTE LEUKAEMIA
     Dosage: TOTAL DOSE ADMINISTERED THIS COURSE: 336 MG
     Route: 065
     Dates: end: 20201109
  21. INOTUZUMAB OZOGAMICIN [Suspect]
     Active Substance: INOTUZUMAB OZOGAMICIN
     Indication: B PRECURSOR TYPE ACUTE LEUKAEMIA
     Dosage: TOTAL DOSE ADMINISTERED THIS COURSE: 6.72 MG
     Route: 065
     Dates: start: 20200423, end: 20200604
  22. MERCAPTOPURINE. [Suspect]
     Active Substance: MERCAPTOPURINE
     Indication: B PRECURSOR TYPE ACUTE LEUKAEMIA
     Dosage: TOTAL DOSE ADMINISTERED THIS COURSE: 3200 MG
     Route: 065
     Dates: end: 20200802

REACTIONS (2)
  - Sepsis [Fatal]
  - Febrile neutropenia [Not Recovered/Not Resolved]

NARRATIVE: CASE EVENT DATE: 20201129
